FAERS Safety Report 8653748 (Version 4)
Quarter: 2014Q1

REPORT INFORMATION
  Report Type: Report from Study
  Country: DE (occurrence: DE)
  Receive Date: 20120709
  Receipt Date: 20140327
  Transmission Date: 20141002
  Serious: No
  Sender: FDA-Public Use
  Company Number: DE-UCBSA-060867

PATIENT
  Sex: Female

DRUGS (10)
  1. CIMZIA [Suspect]
     Indication: RHEUMATOID ARTHRITIS
     Dates: start: 20110222, end: 20111101
  2. PREDNISOLON [Concomitant]
     Indication: INFLAMMATION
  3. IBUPROFEN [Concomitant]
     Indication: PAIN
  4. IBUPROFEN [Concomitant]
     Indication: INFLAMMATION
  5. PANTOPRAZOL [Concomitant]
  6. TILIDIN [Concomitant]
     Indication: PAIN
     Dosage: 50/4,FORMULATION-SOLUTION/DROPS,
  7. INSIDON [Concomitant]
     Indication: DEPRESSION
  8. JODTHYROX [Concomitant]
     Indication: THYROID DISORDER
  9. VIGANTOLETTEN [Concomitant]
     Indication: VITAMIN D DEFICIENCY
     Dosage: DOSE PER INTAKE-1000 IE
  10. CALCIUM EFFERVESCENT [Concomitant]
     Indication: OSTEOPOROSIS

REACTIONS (1)
  - Dermatitis allergic [Recovered/Resolved]
